FAERS Safety Report 10406260 (Version 1)
Quarter: 2014Q3

REPORT INFORMATION
  Report Type: Spontaneous
  Country: US (occurrence: None)
  Receive Date: 20140822
  Receipt Date: 20140822
  Transmission Date: 20150326
  Serious: Yes (Life-Threatening, Hospitalization)
  Sender: FDA-Public Use
  Company Number: None

PATIENT
  Age: 59 Year
  Sex: Female
  Weight: 47.5 kg

DRUGS (3)
  1. DARVOCET N100 [Suspect]
     Active Substance: ACETAMINOPHEN\PROPOXYPHENE NAPSYLATE
     Indication: SUICIDE ATTEMPT
     Dosage: INTENTIONAL OVERDOSE
     Dates: start: 20140515
  2. GABAPENTIN. [Concomitant]
     Active Substance: GABAPENTIN
  3. KLONOPIN [Suspect]
     Active Substance: CLONAZEPAM

REACTIONS (5)
  - Blood pressure decreased [None]
  - Electrocardiogram QT prolonged [None]
  - Incoherent [None]
  - Mental status changes [None]
  - Suicide attempt [None]

NARRATIVE: CASE EVENT DATE: 20140515
